FAERS Safety Report 9949649 (Version 1)
Quarter: 2014Q1

REPORT INFORMATION
  Report Type: Report from Study
  Country: US (occurrence: US)
  Receive Date: 20140304
  Receipt Date: 20140304
  Transmission Date: 20141002
  Serious: No
  Sender: FDA-Public Use
  Company Number: US-ABBVIE-13P-163-1068295-00

PATIENT
  Age: 11 Year
  Sex: Female

DRUGS (15)
  1. HUMIRA [Suspect]
     Indication: CROHN^S DISEASE
     Route: 058
     Dates: start: 20130304
  2. CAL-MAG [Concomitant]
     Indication: PRODUCT USED FOR UNKNOWN INDICATION
  3. COENZYME 1-10 [Concomitant]
     Indication: PRODUCT USED FOR UNKNOWN INDICATION
  4. FLUDROCORTISON [Concomitant]
     Indication: PRODUCT USED FOR UNKNOWN INDICATION
  5. NEURONTIN [Concomitant]
     Indication: PRODUCT USED FOR UNKNOWN INDICATION
  6. MIRALAX [Concomitant]
     Indication: PRODUCT USED FOR UNKNOWN INDICATION
  7. MULTIVITAMIN [Concomitant]
     Indication: PRODUCT USED FOR UNKNOWN INDICATION
  8. OMEGA 3 [Concomitant]
     Indication: PRODUCT USED FOR UNKNOWN INDICATION
  9. OMEPRAZOLE [Concomitant]
     Indication: PRODUCT USED FOR UNKNOWN INDICATION
  10. PROBIOTICS [Concomitant]
     Indication: PRODUCT USED FOR UNKNOWN INDICATION
  11. RIZATRIPTAN [Concomitant]
     Indication: PRODUCT USED FOR UNKNOWN INDICATION
  12. SENNA [Concomitant]
     Indication: PRODUCT USED FOR UNKNOWN INDICATION
  13. SULCRAFATE [Concomitant]
     Indication: PRODUCT USED FOR UNKNOWN INDICATION
  14. TYLENOL [Concomitant]
     Indication: PRODUCT USED FOR UNKNOWN INDICATION
  15. VITAMIN C [Concomitant]
     Indication: PRODUCT USED FOR UNKNOWN INDICATION

REACTIONS (1)
  - Unevaluable event [Recovered/Resolved]
